FAERS Safety Report 14587892 (Version 7)
Quarter: 2019Q1

REPORT INFORMATION
  Report Type: Report from Study
  Country: DE (occurrence: DE)
  Receive Date: 20180301
  Receipt Date: 20190214
  Transmission Date: 20190417
  Serious: Yes (Hospitalization, Other)
  Sender: FDA-Public Use
  Company Number: PHHY2018DE021592

PATIENT
  Sex: Female
  Weight: 79.2 kg

DRUGS (5)
  1. ANASTROZOLE. [Suspect]
     Active Substance: ANASTROZOLE
     Dosage: 1 MG, QD (1-0-0)
     Route: 048
     Dates: start: 20181117, end: 20181120
  2. ANASTROZOLE. [Suspect]
     Active Substance: ANASTROZOLE
     Indication: BREAST CANCER METASTATIC
     Dosage: 1 MG, QD
     Route: 048
     Dates: start: 20180105, end: 20181113
  3. KISQALI [Suspect]
     Active Substance: RIBOCICLIB
     Indication: BREAST CANCER METASTATIC
     Dosage: 3 DF (200 MG), QD,1-21,7D  PAUSE
     Route: 048
     Dates: start: 20180105, end: 20180320
  4. KISQALI [Suspect]
     Active Substance: RIBOCICLIB
     Dosage: 2 DF (200 MG), QD
     Route: 048
     Dates: start: 20180321, end: 20181113
  5. KISQALI [Suspect]
     Active Substance: RIBOCICLIB
     Dosage: 2 DF, QD (200 MG, 2-0-0)
     Route: 048
     Dates: start: 20181117, end: 20181120

REACTIONS (7)
  - Dyspnoea [Recovering/Resolving]
  - Cough [Recovered/Resolved]
  - General physical health deterioration [Recovered/Resolved]
  - Concomitant disease progression [Unknown]
  - Ascites [Recovering/Resolving]
  - Pneumothorax [Recovered/Resolved]
  - Chronic kidney disease [Unknown]

NARRATIVE: CASE EVENT DATE: 201801
